FAERS Safety Report 4951639-6 (Version None)
Quarter: 2006Q1

REPORT INFORMATION
  Report Type: 
  Country: None (occurrence: None)
  Receive Date: 20060322
  Receipt Date: 20060322
  Transmission Date: 20060701
  Serious: No
  Sender: FDA-Public Use
  Company Number: None

PATIENT
  Sex: Male
  Weight: 83.9154 kg

DRUGS (2)
  1. CYMBALTA [Suspect]
     Indication: NEUROPATHY PERIPHERAL
     Dosage: ONE PER DAY
     Dates: start: 20060104, end: 20060310
  2. LYRICA [Suspect]
     Indication: NEUROPATHY PERIPHERAL
     Dosage: ONE THREE TIMES/DAY
     Dates: start: 20051015, end: 20060310

REACTIONS (3)
  - MACULAR DEGENERATION [None]
  - VISION BLURRED [None]
  - VISUAL DISTURBANCE [None]
